FAERS Safety Report 11466058 (Version 1)
Quarter: 2015Q3

REPORT INFORMATION
  Report Type: Spontaneous
  Country: CA (occurrence: CA)
  Receive Date: 20150907
  Receipt Date: 20150907
  Transmission Date: 20151125
  Serious: Yes (Death)
  Sender: FDA-Public Use
  Company Number: CA-JNJFOC-20150823885

PATIENT
  Sex: Male

DRUGS (1)
  1. TYLENOL EXTRA STRENGTH [Suspect]
     Active Substance: ACETAMINOPHEN
     Indication: HERPES ZOSTER
     Dosage: 2 YEARS, PERHAPS 3 YEARS
     Route: 048

REACTIONS (4)
  - Hepatitis [Unknown]
  - Death [Fatal]
  - Product use issue [Unknown]
  - Therapeutic response unexpected [Unknown]
